FAERS Safety Report 20092269 (Version 6)
Quarter: 2022Q2

REPORT INFORMATION
  Report Type: Report from Study
  Country: US (occurrence: US)
  Receive Date: 20211119
  Receipt Date: 20220404
  Transmission Date: 20220721
  Serious: Yes (Hospitalization)
  Sender: FDA-Public Use
  Company Number: US-SEATTLE GENETICS-2021SGN05887

PATIENT
  Age: 66 Year
  Sex: Male

DRUGS (6)
  1. ENFORTUMAB VEDOTIN [Suspect]
     Active Substance: ENFORTUMAB VEDOTIN
     Indication: Transitional cell carcinoma
     Dosage: 1.25 MG/KG, CYCLIC (DAYS 1 AND 8 OF EVERY 3-WEEK CYCLE)
     Route: 042
     Dates: start: 20210804
  2. PEMBROLIZUMAB [Suspect]
     Active Substance: PEMBROLIZUMAB
     Indication: Transitional cell carcinoma
     Dosage: 200 MG, EVERY 3 WEEKS (DAY 1 OF EACH 3-WEEK CYCLE)
     Route: 042
     Dates: start: 20210804
  3. CIPRO [Concomitant]
     Active Substance: CIPROFLOXACIN HYDROCHLORIDE
     Indication: Diverticulitis
     Dosage: UNK UNK, UNKNOWN FREQ.
     Route: 065
  4. FLAGYL [Concomitant]
     Active Substance: METRONIDAZOLE\METRONIDAZOLE HYDROCHLORIDE
     Indication: Diverticulitis
     Dosage: UNK UNK, UNKNOWN FREQ.
     Route: 065
  5. TYLENOL [Concomitant]
     Active Substance: ACETAMINOPHEN
     Indication: Pain
     Dosage: UNK UNK, UNKNOWN FREQ.
     Route: 065
  6. ADVIL [Concomitant]
     Active Substance: IBUPROFEN
     Indication: Pain
     Dosage: UNK UNK, UNKNOWN FREQ.
     Route: 065

REACTIONS (2)
  - Small intestinal obstruction [Recovered/Resolved]
  - Diverticulitis [Recovered/Resolved]

NARRATIVE: CASE EVENT DATE: 20211114
